FAERS Safety Report 6379670-7 (Version None)
Quarter: 2009Q3

REPORT INFORMATION
  Report Type: 
  Country: None (occurrence: None)
  Receive Date: 20090924
  Receipt Date: 20090924
  Transmission Date: 20100115
  Serious: No
  Sender: FDA-Public Use
  Company Number: None

PATIENT
  Sex: Female
  Weight: 61.2 kg

DRUGS (1)
  1. TARCEVA [Suspect]
     Dosage: 150 MG
     Dates: end: 20051025

REACTIONS (1)
  - CONJUNCTIVITIS INFECTIVE [None]
